FAERS Safety Report 7505828-7 (Version None)
Quarter: 2011Q2

REPORT INFORMATION
  Report Type: 
  Country: None (occurrence: None)
  Receive Date: 20110526
  Receipt Date: 20110517
  Transmission Date: 20111010
  Serious: Yes (Other)
  Sender: FDA-Public Use
  Company Number: US-ELI_LILLY_AND_COMPANY-US201105005563

PATIENT
  Sex: Female

DRUGS (3)
  1. HUMALOG [Suspect]
     Indication: DIABETES MELLITUS
     Dosage: 6 U, TID
  2. HUMALOG [Suspect]
     Dosage: UNK UNK, PRN
  3. LANTUS [Concomitant]

REACTIONS (6)
  - UNDERDOSE [None]
  - DIABETIC GANGRENE [None]
  - VASCULAR OCCLUSION [None]
  - FEELING ABNORMAL [None]
  - VISUAL IMPAIRMENT [None]
  - AMPUTATION [None]
